FAERS Safety Report 9728195 (Version 1)
Quarter: 2013Q4

REPORT INFORMATION
  Report Type: Spontaneous
  Country: CZ (occurrence: CZ)
  Receive Date: 20131204
  Receipt Date: 20131204
  Transmission Date: 20140711
  Serious: Yes (Hospitalization)
  Sender: FDA-Public Use
  Company Number: CZ-JNJFOC-20131114947

PATIENT
  Age: 80 Year
  Sex: Male

DRUGS (1)
  1. ZYTIGA [Suspect]
     Indication: PROSTATE CANCER
     Route: 048
     Dates: start: 201302, end: 20131119

REACTIONS (4)
  - Cardiac failure [Recovering/Resolving]
  - Arrhythmia [Recovered/Resolved]
  - Pulmonary oedema [Unknown]
  - Cystitis [Recovered/Resolved]
